FAERS Safety Report 17871277 (Version 1)
Quarter: 2020Q2

REPORT INFORMATION
  Report Type: Report from Study
  Country: CA (occurrence: CA)
  Receive Date: 20200608
  Receipt Date: 20200608
  Transmission Date: 20200714
  Serious: Yes (Other)
  Sender: FDA-Public Use
  Company Number: CA-PFIZER INC-2020220050

PATIENT
  Age: 48 Year
  Sex: Male

DRUGS (3)
  1. SULFASALAZINE. [Concomitant]
     Active Substance: SULFASALAZINE
     Route: 048
  2. METHOTREXATE SODIUM. [Suspect]
     Active Substance: METHOTREXATE SODIUM
     Route: 041
  3. PLAQUENIL [Concomitant]
     Active Substance: HYDROXYCHLOROQUINE SULFATE
     Route: 048

REACTIONS (4)
  - Cerebrovascular accident [Unknown]
  - Cardiac failure [Unknown]
  - General physical health deterioration [Unknown]
  - Pain [Unknown]
